FAERS Safety Report 8881296 (Version 2)
Quarter: 2013Q1

REPORT INFORMATION
  Report Type: Report from Study
  Country: JP (occurrence: JP)
  Receive Date: 20121031
  Receipt Date: 20130118
  Transmission Date: 20140127
  Serious: Yes (Hospitalization)
  Sender: FDA-Public Use
  Company Number: JP-VERTEX PHARMACEUTICAL INC.-2012-023812

PATIENT
  Age: 64 Year
  Sex: Male

DRUGS (10)
  1. VX-950 (TELAPREVIR) [Suspect]
     Indication: CHRONIC HEPATITIS C
     Dosage: 2250 MG, QD
     Route: 048
     Dates: start: 20120427, end: 20120502
  2. RIBAVIRIN [Suspect]
     Indication: CHRONIC HEPATITIS C
     Dosage: 1000 MG, QD
     Route: 048
     Dates: start: 20120427, end: 20120502
  3. PEGINTERFERON ALFA-2B [Suspect]
     Indication: CHRONIC HEPATITIS C
     Dosage: 1.5 ?G/KG, WEEKLY
     Route: 058
     Dates: start: 20120427, end: 20120502
  4. UNIPHYLLA [Concomitant]
     Dosage: 400 MG, QD
     Route: 048
  5. SINGULAIR [Concomitant]
     Dosage: 10 MG, QD
     Route: 048
  6. MUCOSOLVAN [Concomitant]
     Dosage: 45 MG, QD
     Route: 048
  7. ADOAIR [Concomitant]
     Dosage: 100 ?G, QD
     Route: 007
  8. IPD [Concomitant]
     Dosage: 300 MG, QD
     Route: 048
  9. ZYRTEC [Concomitant]
     Dosage: 10 MG, QD
     Route: 048
  10. MUCODYNE [Concomitant]
     Dosage: 1500 MG, QD
     Route: 048

REACTIONS (1)
  - Pneumonia [Recovered/Resolved]
